FAERS Safety Report 21015126 (Version 1)
Quarter: 2022Q2

REPORT INFORMATION
  Report Type: Spontaneous
  Country: ZA (occurrence: US)
  Receive Date: 20220628
  Receipt Date: 20220628
  Transmission Date: 20220721
  Serious: No
  Sender: FDA-Public Use
  Company Number: ZA-ORGANON-O2206USA000987

PATIENT
  Age: 41 Year
  Sex: Female

DRUGS (3)
  1. ZETIA [Suspect]
     Active Substance: EZETIMIBE
     Indication: Type IIa hyperlipidaemia
     Dosage: 10 MILLIGRAM/DAY
     Route: 048
  2. ATORVASTATIN [Suspect]
     Active Substance: ATORVASTATIN
     Indication: Type IIa hyperlipidaemia
     Dosage: 80 MILLIGRAM/DAY
  3. ASPIRIN [Suspect]
     Active Substance: ASPIRIN
     Indication: Type IIa hyperlipidaemia
     Dosage: 80 MILLIGRAM/DAY

REACTIONS (1)
  - Therapeutic product effect incomplete [Unknown]
